FAERS Safety Report 6034771-8 (Version None)
Quarter: 2009Q1

REPORT INFORMATION
  Report Type: 
  Country: None (occurrence: None)
  Receive Date: 20090112
  Receipt Date: 20090105
  Transmission Date: 20090719
  Serious: Yes (Death)
  Sender: FDA-Public Use
  Company Number: AU-ELI_LILLY_AND_COMPANY-AU200811002061

PATIENT
  Sex: Female

DRUGS (4)
  1. CYMBALTA [Suspect]
     Dosage: 60 MG, DAILY (1/D)
     Route: 065
     Dates: start: 20081022, end: 20081108
  2. MOCLOBEMIDE [Concomitant]
     Dosage: UNK, UNKNOWN
     Route: 065
     Dates: end: 20081022
  3. DIGOXIN [Concomitant]
     Dosage: UNK, 2/D
     Route: 065
     Dates: start: 20080701, end: 20081104
  4. EPILIM [Concomitant]
     Dosage: UNK, 2/D
     Route: 065
     Dates: end: 20081104

REACTIONS (2)
  - CARDIOPULMONARY FAILURE [None]
  - SOMNOLENCE [None]
